FAERS Safety Report 6544666-9 (Version None)
Quarter: 2010Q1

REPORT INFORMATION
  Report Type: 
  Country: None (occurrence: None)
  Receive Date: 20100120
  Receipt Date: 20100120
  Transmission Date: 20100710
  Serious: Yes (Life-Threatening, Hospitalization)
  Sender: FDA-Public Use
  Company Number: None

PATIENT
  Sex: Male
  Weight: 86.637 kg

DRUGS (2)
  1. HEPARIN [Suspect]
  2. LOVENOX [Concomitant]

REACTIONS (8)
  - ATRIAL FIBRILLATION [None]
  - EMOTIONAL DISTRESS [None]
  - HEPARIN-INDUCED THROMBOCYTOPENIA [None]
  - MYOCARDIAL INFARCTION [None]
  - POOR QUALITY DRUG ADMINISTERED [None]
  - PRODUCT CONTAMINATION [None]
  - PULMONARY THROMBOSIS [None]
  - WHITE CLOT SYNDROME [None]
